FAERS Safety Report 14598538 (Version 1)
Quarter: 2018Q1

REPORT INFORMATION
  Report Type: Spontaneous
  Country: US (occurrence: US)
  Receive Date: 20180302
  Receipt Date: 20180302
  Transmission Date: 20180509
  Serious: Yes (Hospitalization)
  Sender: FDA-Public Use
  Company Number: None

PATIENT
  Age: 18 Year
  Sex: Female

DRUGS (3)
  1. COLISTIMETHATE 150MG VIAL [Suspect]
     Active Substance: COLISTIMETHATE SODIUM
     Indication: CYSTIC FIBROSIS
     Dosage: DOSE - 1 VIAL
     Route: 055
     Dates: start: 20170427
  2. STERILE WATER [Concomitant]
     Active Substance: WATER
  3. TOBI PODHALER [Suspect]
     Active Substance: TOBRAMYCIN
     Indication: CYSTIC FIBROSIS
     Dosage: DOSE - 4 CAPS
     Route: 055
     Dates: start: 20140807

REACTIONS (2)
  - Cystic fibrosis [None]
  - Disease complication [None]
